FAERS Safety Report 10715779 (Version 1)
Quarter: 2015Q1

REPORT INFORMATION
  Report Type: Spontaneous
  Country: CA (occurrence: CA)
  Receive Date: 20150116
  Receipt Date: 20150116
  Transmission Date: 20150721
  Serious: Yes (Other)
  Sender: FDA-Public Use
  Company Number: CA-ROCHE-1521969

PATIENT
  Age: 51 Year
  Sex: Female

DRUGS (2)
  1. HUMAN CHORIONIC GONADOTROPIN [Suspect]
     Active Substance: GONADOTROPHIN, CHORIONIC
     Indication: WEIGHT CONTROL
     Dosage: POWDER FOR SOLUTION
     Route: 030
  2. TENECTEPLASE [Suspect]
     Active Substance: TENECTEPLASE
     Indication: ACUTE CORONARY SYNDROME
     Dosage: DOSAGE AND FREQUENCY UNKNOWN
     Route: 065

REACTIONS (2)
  - Coronary artery dissection [Recovered/Resolved]
  - Chest pain [Recovered/Resolved]
